FAERS Safety Report 23714510 (Version 1)
Quarter: 2024Q2

REPORT INFORMATION
  Report Type: Other
  Country: BR (occurrence: BR)
  Receive Date: 20240406
  Receipt Date: 20240406
  Transmission Date: 20240716
  Serious: Yes (Death, Hospitalization)
  Sender: FDA-Public Use
  Company Number: BR-BP-2024-BR-37814260

PATIENT
  Age: 40 Year
  Sex: Female
  Weight: 79.4 kg

DRUGS (6)
  1. PRIMAQUINE [Suspect]
     Active Substance: PRIMAQUINE
     Indication: Malaria
     Dates: start: 20191213, end: 20191217
  2. PRIMAQUINE [Suspect]
     Active Substance: PRIMAQUINE
     Indication: Thrombocytopenia
  3. CHLOROQUINE [Suspect]
     Active Substance: CHLOROQUINE
     Indication: Malaria
     Dates: start: 20191213, end: 20191213
  4. CHLOROQUINE [Suspect]
     Active Substance: CHLOROQUINE
     Indication: Thrombocytopenia
  5. CHLOROQUINE [Suspect]
     Active Substance: CHLOROQUINE
     Indication: Malaria
     Dates: start: 20191214, end: 20191215
  6. CHLOROQUINE [Suspect]
     Active Substance: CHLOROQUINE
     Indication: Thrombocytopenia

REACTIONS (2)
  - Acute respiratory distress syndrome [Fatal]
  - Cardiac arrest [Fatal]
